FAERS Safety Report 7341433-3 (Version None)
Quarter: 2011Q1

REPORT INFORMATION
  Report Type: 
  Country: None (occurrence: None)
  Receive Date: 20110309
  Receipt Date: 20110304
  Transmission Date: 20110831
  Serious: Yes (Death, Hospitalization)
  Sender: FDA-Public Use
  Company Number: PHHO2011FR04210

PATIENT
  Sex: Male

DRUGS (2)
  1. CORTANCYL [Concomitant]
  2. STI571/CGP57148B [Suspect]
     Indication: ACUTE LYMPHOCYTIC LEUKAEMIA
     Dosage: UNK

REACTIONS (10)
  - EYELID PTOSIS [None]
  - DEATH [None]
  - ZYGOMYCOSIS [None]
  - CELLULITIS [None]
  - NECROSIS [None]
  - APLASIA [None]
  - ESCHERICHIA BACTERAEMIA [None]
  - SWELLING FACE [None]
  - GENERAL PHYSICAL HEALTH DETERIORATION [None]
  - PYREXIA [None]
